FAERS Safety Report 8347995-1 (Version None)
Quarter: 2012Q2

REPORT INFORMATION
  Report Type: 
  Country: None (occurrence: None)
  Receive Date: 20120509
  Receipt Date: 20120503
  Transmission Date: 20120825
  Serious: Yes (Other)
  Sender: FDA-Public Use
  Company Number: US-FRI-1000030289

PATIENT
  Sex: Female

DRUGS (4)
  1. CYMBALTA [Concomitant]
     Indication: DEPRESSION
     Dates: end: 20120301
  2. VIIBRYD [Suspect]
     Indication: DEPRESSION
     Dosage: 10 MG
     Route: 048
     Dates: start: 20120302, end: 20120308
  3. VIIBRYD [Suspect]
     Dosage: 20 MG
     Route: 048
     Dates: start: 20120309, end: 20120315
  4. VIIBRYD [Suspect]
     Dosage: 40 MG
     Route: 048
     Dates: start: 20120316, end: 20120410

REACTIONS (5)
  - SELF INJURIOUS BEHAVIOUR [None]
  - POOR QUALITY SLEEP [None]
  - NAUSEA [None]
  - DEPRESSION [None]
  - TEARFULNESS [None]
